FAERS Safety Report 10347400 (Version 1)
Quarter: 2014Q3

REPORT INFORMATION
  Report Type: Spontaneous
  Country: US (occurrence: None)
  Receive Date: 20140725
  Receipt Date: 20140725
  Transmission Date: 20150326
  Serious: Yes (Death)
  Sender: FDA-Public Use
  Company Number: UNT-2014-003991

PATIENT
  Age: 80 Year
  Sex: Male

DRUGS (1)
  1. TYVASO [Suspect]
     Active Substance: TREPROSTINIL
     Indication: PULMONARY ARTERIAL HYPERTENSION
     Route: 055
     Dates: start: 20130625, end: 20140704

REACTIONS (5)
  - Emphysema [None]
  - Cardiac disorder [None]
  - Disease complication [None]
  - Pulmonary arterial hypertension [None]
  - Pulmonary fibrosis [None]
